FAERS Safety Report 23665759 (Version 1)
Quarter: 2024Q1

REPORT INFORMATION
  Report Type: Spontaneous
  Country: CA (occurrence: CA)
  Receive Date: 20240323
  Receipt Date: 20240323
  Transmission Date: 20240410
  Serious: Yes (Congenital Anomaly, Other)
  Sender: FDA-Public Use
  Company Number: CA-NOVITIUMPHARMA-2024CANVP00325

PATIENT

DRUGS (1)
  1. PREDNISONE [Suspect]
     Active Substance: PREDNISONE
     Indication: Product used for unknown indication
     Route: 064

REACTIONS (4)
  - Cleft palate [Unknown]
  - Hypopituitarism [Unknown]
  - Secondary hypogonadism [Unknown]
  - Foetal exposure during pregnancy [Unknown]
